FAERS Safety Report 7003270-9 (Version None)
Quarter: 2010Q3

REPORT INFORMATION
  Report Type: 
  Country: None (occurrence: None)
  Receive Date: 20100920
  Receipt Date: 20100913
  Transmission Date: 20110219
  Serious: Yes (Hospitalization, Other)
  Sender: FDA-Public Use
  Company Number: US-PFIZER INC-2010080215

PATIENT
  Sex: Female
  Weight: 98.429 kg

DRUGS (12)
  1. REVATIO [Suspect]
     Indication: PULMONARY HYPERTENSION
     Dosage: 40 MG, 3X/DAY
  2. NAPROSYN [Suspect]
  3. POTASSIUM CHLORIDE [Concomitant]
  4. OXYGEN [Concomitant]
  5. TYLENOL [Concomitant]
  6. PROPRANOLOL [Concomitant]
  7. CYCLOBENZAPRINE [Concomitant]
  8. TOPAMAX [Concomitant]
  9. THIAMINE [Concomitant]
  10. FOLATE [Concomitant]
  11. PROTONIX [Concomitant]
  12. FUROSEMIDE [Concomitant]

REACTIONS (1)
  - GASTROINTESTINAL HAEMORRHAGE [None]
